FAERS Safety Report 15073400 (Version 1)
Quarter: 2018Q2

REPORT INFORMATION
  Report Type: Spontaneous
  Country: US (occurrence: US)
  Receive Date: 20180627
  Receipt Date: 20180627
  Transmission Date: 20180711
  Serious: Yes (Other)
  Sender: FDA-Public Use
  Company Number: PHEH2018US024859

PATIENT
  Sex: Female
  Weight: 95.25 kg

DRUGS (2)
  1. ILARIS [Suspect]
     Active Substance: CANAKINUMAB
     Indication: PYREXIA
     Dosage: 150 MG, QMO
     Route: 058
     Dates: start: 201711
  2. ILARIS [Suspect]
     Active Substance: CANAKINUMAB
     Indication: DRUG THERAPY

REACTIONS (5)
  - Neuropathy peripheral [Unknown]
  - Condition aggravated [Unknown]
  - Feeling abnormal [Unknown]
  - Fatigue [Unknown]
  - Dizziness [Unknown]
